FAERS Safety Report 25941551 (Version 1)
Quarter: 2025Q4

REPORT INFORMATION
  Report Type: Spontaneous
  Country: US (occurrence: None)
  Receive Date: 20251020
  Receipt Date: 20251020
  Transmission Date: 20260118
  Serious: Yes (Other)
  Sender: UCB
  Company Number: US-UCBSA-2025064902

PATIENT
  Age: 22 Year

DRUGS (2)
  1. BIMZELX [Suspect]
     Active Substance: BIMEKIZUMAB-BKZX
     Indication: Product used for unknown indication
     Dosage: 320 MILLIGRAM, EV 2 WEEKS(QOW)
  2. BIMZELX [Suspect]
     Active Substance: BIMEKIZUMAB-BKZX
     Dosage: 320 MILLIGRAM, EV 2 WEEKS(QOW)

REACTIONS (9)
  - Surgery [Unknown]
  - Condition aggravated [Unknown]
  - Fatigue [Unknown]
  - Apathy [Unknown]
  - Injection site reaction [Unknown]
  - Pain [Unknown]
  - Injection site mass [Recovered/Resolved]
  - Skin disorder [Unknown]
  - Drug ineffective [Unknown]
